FAERS Safety Report 8934861 (Version 5)
Quarter: 2014Q1

REPORT INFORMATION
  Report Type: Spontaneous
  Country: US (occurrence: US)
  Receive Date: 20121129
  Receipt Date: 20140228
  Transmission Date: 20141002
  Serious: No
  Sender: FDA-Public Use
  Company Number: US-009507513-1211USA012126

PATIENT
  Sex: Male

DRUGS (2)
  1. PROPECIA [Suspect]
     Indication: ALOPECIA
     Dosage: 1 MG, UNK
     Route: 048
     Dates: start: 20080813, end: 20081125
  2. FINASTERIDE [Suspect]
     Indication: ALOPECIA
     Dosage: 5 MG, UNK
     Dates: start: 20080619, end: 20081105

REACTIONS (37)
  - Cognitive disorder [Not Recovered/Not Resolved]
  - Blood testosterone decreased [Recovered/Resolved]
  - Hypogonadism [Unknown]
  - Anxiety [Unknown]
  - Psychiatric symptom [Unknown]
  - Inappropriate schedule of drug administration [Unknown]
  - Asthenia [Unknown]
  - Nausea [Unknown]
  - Dizziness [Unknown]
  - Dyspnoea [Unknown]
  - Metal poisoning [Unknown]
  - Vitamin B6 increased [Unknown]
  - Pain in extremity [Unknown]
  - Restless legs syndrome [Unknown]
  - Muscle spasms [Unknown]
  - Fatigue [Unknown]
  - Blood iron decreased [Unknown]
  - Blood testosterone increased [Unknown]
  - Neuropathy peripheral [Unknown]
  - Headache [Unknown]
  - Muscle spasms [Unknown]
  - Aggression [Unknown]
  - Hyperhidrosis [Unknown]
  - Weight fluctuation [Unknown]
  - Chills [Unknown]
  - Nasal congestion [Unknown]
  - Myalgia [Unknown]
  - Arthralgia [Unknown]
  - Feeling of body temperature change [Unknown]
  - Constipation [Unknown]
  - Paraesthesia [Unknown]
  - Male orgasmic disorder [Unknown]
  - Ejaculation delayed [Unknown]
  - Loss of libido [Unknown]
  - Erectile dysfunction [Not Recovered/Not Resolved]
  - Sexual dysfunction [Not Recovered/Not Resolved]
  - Depression [Unknown]
